FAERS Safety Report 6892248-1 (Version None)
Quarter: 2010Q3

REPORT INFORMATION
  Report Type: 
  Country: None (occurrence: None)
  Receive Date: 20100731
  Receipt Date: 20080226
  Transmission Date: 20110219
  Serious: Yes (Other)
  Sender: FDA-Public Use
  Company Number: US-PFIZER INC-2008018070

PATIENT
  Sex: Male
  Weight: 53.5 kg

DRUGS (5)
  1. NEURONTIN [Suspect]
     Indication: MIGRAINE
     Dates: start: 20080215
  2. NEURONTIN [Suspect]
     Indication: ALLODYNIA
  3. AMITRIPTYLINE HYDROCHLORIDE [Concomitant]
  4. OMEPRAZOLE [Concomitant]
  5. CELEXA [Concomitant]

REACTIONS (1)
  - PYREXIA [None]
